FAERS Safety Report 14102125 (Version 4)
Quarter: 2018Q1

REPORT INFORMATION
  Report Type: Report from Study
  Country: JP (occurrence: JP)
  Receive Date: 20171018
  Receipt Date: 20180316
  Transmission Date: 20180508
  Serious: Yes (Hospitalization)
  Sender: FDA-Public Use
  Company Number: JP-ASTRAZENECA-2017SE63145

PATIENT
  Age: 53 Year
  Sex: Male
  Weight: 45 kg

DRUGS (11)
  1. LYRICA [Concomitant]
     Active Substance: PREGABALIN
     Dosage: DOSE UNKNOWN
     Route: 048
  2. BROTIZOLAM [Concomitant]
     Active Substance: BROTIZOLAM
     Dosage: DOSE UNKNOWN
     Route: 048
  3. FENTANYL CITRATE. [Concomitant]
     Active Substance: FENTANYL CITRATE
     Dosage: DOSE UNKNOWN
     Route: 062
  4. BISOLVON [Concomitant]
     Active Substance: BROMHEXINE HYDROCHLORIDE
     Dosage: DOSE UNKNOWN
     Route: 065
  5. FLAGYL [Concomitant]
     Active Substance: METRONIDAZOLE\METRONIDAZOLE HYDROCHLORIDE
     Dosage: DOSE UNKNOWN
     Route: 048
  6. ASACOL [Concomitant]
     Active Substance: MESALAMINE
     Dosage: DOSE UNKNOWN
     Route: 048
  7. TAGRISSO [Suspect]
     Active Substance: OSIMERTINIB
     Indication: NON-SMALL CELL LUNG CANCER
     Route: 048
     Dates: start: 20170410
  8. MIYA-BM [Concomitant]
     Active Substance: CLOSTRIDIUM BUTYRICUM SPORES STRAIN M-55
     Dosage: DOSE UNKNOWN
     Route: 048
  9. CALONAL [Concomitant]
     Active Substance: ACETAMINOPHEN
     Dosage: DOSE UNKNOWN
     Route: 065
  10. TAGRISSO [Suspect]
     Active Substance: OSIMERTINIB
     Indication: NON-SMALL CELL LUNG CANCER
     Route: 048
     Dates: start: 20170214, end: 20170405
  11. PYDOXAL [Concomitant]
     Active Substance: PYRIDOXAL
     Dosage: DOSE UNKNOWN
     Route: 065

REACTIONS (2)
  - Vomiting [Recovering/Resolving]
  - Diarrhoea [Recovered/Resolved]

NARRATIVE: CASE EVENT DATE: 20170403
